FAERS Safety Report 5749717-7 (Version None)
Quarter: 2008Q2

REPORT INFORMATION
  Report Type: 
  Country: None (occurrence: None)
  Receive Date: 20080527
  Receipt Date: 20080519
  Transmission Date: 20081010
  Serious: Yes (Hospitalization)
  Sender: FDA-Public Use
  Company Number: JP-ASTRAZENECA-2008AP03932

PATIENT
  Age: 72 Year
  Sex: Male

DRUGS (4)
  1. CRESTOR [Suspect]
     Indication: LIPIDS ABNORMAL
     Route: 048
     Dates: start: 20080417, end: 20080424
  2. NU-LOTAN [Concomitant]
     Dosage: DOSE UNKNOWN
     Route: 048
  3. PREMINENT [Concomitant]
     Route: 048
     Dates: start: 20080208
  4. ADALAT [Concomitant]
     Dosage: DOSE UNKNOWN
     Route: 048
     Dates: start: 20080311

REACTIONS (4)
  - DIZZINESS [None]
  - MALAISE [None]
  - PHOTOSENSITIVITY REACTION [None]
  - RASH GENERALISED [None]
